FAERS Safety Report 9714199 (Version 2)
Quarter: 2013Q4

REPORT INFORMATION
  Report Type: Spontaneous
  Country: US (occurrence: US)
  Receive Date: 20131126
  Receipt Date: 20131126
  Transmission Date: 20140711
  Serious: No
  Sender: FDA-Public Use
  Company Number: US-GILEAD-2008-0018912

PATIENT
  Age: 70 Year
  Sex: Female
  Weight: 99.79 kg

DRUGS (7)
  1. LETAIRIS [Suspect]
     Indication: PULMONARY HYPERTENSION
     Route: 048
     Dates: start: 20080909
  2. LETAIRIS [Suspect]
     Route: 048
     Dates: start: 2008, end: 200810
  3. JANUVIA [Concomitant]
  4. ACTOS [Concomitant]
  5. ATACAND HCT [Concomitant]
     Dosage: 32-12.5
  6. HUMULIN [Concomitant]
     Dosage: 70/30
     Route: 058
  7. LASIX [Concomitant]

REACTIONS (4)
  - Tinnitus [Recovered/Resolved]
  - Drug ineffective [Recovered/Resolved]
  - Joint swelling [Recovered/Resolved]
  - Palpitations [Recovered/Resolved]
